FAERS Safety Report 5524284-1 (Version None)
Quarter: 2007Q4

REPORT INFORMATION
  Report Type: 
  Country: None (occurrence: None)
  Receive Date: 20071121
  Receipt Date: 20071111
  Transmission Date: 20080405
  Serious: Yes (Hospitalization, Other)
  Sender: FDA-Public Use
  Company Number: JP-PFIZER INC-2007095210

PATIENT
  Age: 52 Year
  Sex: Female

DRUGS (1)
  1. RELPAX [Suspect]
     Indication: HEADACHE
     Route: 048

REACTIONS (2)
  - CSF TEST ABNORMAL [None]
  - METASTASES TO MENINGES [None]
